FAERS Safety Report 13921013 (Version 2)
Quarter: 2017Q3

REPORT INFORMATION
  Report Type: Report from Study
  Country: US (occurrence: US)
  Receive Date: 20170830
  Receipt Date: 20170912
  Transmission Date: 20171127
  Serious: Yes (Death, Hospitalization)
  Sender: FDA-Public Use
  Company Number: US-SHIRE-US201719706

PATIENT
  Age: 63 Year
  Sex: Female
  Weight: 59.41 kg

DRUGS (1)
  1. GATTEX [Suspect]
     Active Substance: TEDUGLUTIDE\WATER
     Indication: SHORT-BOWEL SYNDROME
     Dosage: 0.297 ML, 1X/DAY:QD
     Route: 058
     Dates: start: 201704

REACTIONS (3)
  - Diarrhoea [Fatal]
  - Asthenia [Fatal]
  - Oedema [Fatal]

NARRATIVE: CASE EVENT DATE: 20170411
